FAERS Safety Report 5588275-7 (Version None)
Quarter: 2008Q1

REPORT INFORMATION
  Report Type: 
  Country: None (occurrence: None)
  Receive Date: 20080111
  Receipt Date: 20080110
  Transmission Date: 20080703
  Serious: Yes (Death, Hospitalization, Other)
  Sender: FDA-Public Use
  Company Number: BR-ASTRAZENECA-2008UW00680

PATIENT
  Age: 84 Year
  Sex: Female

DRUGS (1)
  1. ARIMIDEX [Suspect]
     Indication: BREAST MASS
     Route: 048
     Dates: start: 20020101

REACTIONS (8)
  - ANAL HAEMORRHAGE [None]
  - BONE DISORDER [None]
  - BREAST CANCER RECURRENT [None]
  - DIABETES MELLITUS [None]
  - METASTASES TO LIVER [None]
  - METASTASES TO LUNG [None]
  - MULTI-ORGAN FAILURE [None]
  - URINARY TRACT INFECTION [None]
